FAERS Safety Report 14608434 (Version 1)
Quarter: 2018Q1

REPORT INFORMATION
  Report Type: Spontaneous
  Country: FR (occurrence: FR)
  Receive Date: 20180307
  Receipt Date: 20180307
  Transmission Date: 20180509
  Serious: Yes (Death, Other)
  Sender: FDA-Public Use
  Company Number: FR-009507513-1802FRA013735

PATIENT
  Age: 63 Year
  Sex: Male
  Weight: 62 kg

DRUGS (10)
  1. CYCLOPHOSPHAMIDE. [Suspect]
     Active Substance: CYCLOPHOSPHAMIDE
     Indication: BONE PAIN
     Dosage: 4 MG, UNK
     Route: 041
     Dates: start: 20171115
  2. DACARBAZINE. [Suspect]
     Active Substance: DACARBAZINE
  3. SKENAN [Suspect]
     Active Substance: MORPHINE SULFATE
     Indication: PAIN
     Dosage: 30 MG, QD
     Route: 048
     Dates: start: 20171121, end: 20171122
  4. ACTISKENAN [Suspect]
     Active Substance: MORPHINE SULFATE
     Indication: PAIN
     Dosage: 5 MG, UNK
     Route: 048
     Dates: start: 20171121, end: 20171122
  5. NEFOPAM [Suspect]
     Active Substance: NEFOPAM
     Indication: PAIN
     Route: 065
     Dates: end: 20171122
  6. DOXORUBICIN [Suspect]
     Active Substance: DOXORUBICIN
  7. DACTINOMYCIN [Suspect]
     Active Substance: DACTINOMYCIN
  8. INNOHEP [Suspect]
     Active Substance: TINZAPARIN SODIUM
     Indication: THROMBOSIS PROPHYLAXIS
     Route: 058
     Dates: end: 20171122
  9. KEYTRUDA [Suspect]
     Active Substance: PEMBROLIZUMAB
     Indication: LUNG NEOPLASM MALIGNANT
     Dosage: 200 MG, UNK
     Route: 041
     Dates: start: 20171115
  10. ACETAMINOPHEN. [Suspect]
     Active Substance: ACETAMINOPHEN
     Indication: PAIN
     Route: 048
     Dates: end: 20171122

REACTIONS (1)
  - Death [Fatal]

NARRATIVE: CASE EVENT DATE: 20171122
